FAERS Safety Report 18034922 (Version 1)
Quarter: 2020Q3

REPORT INFORMATION
  Report Type: Spontaneous
  Country: US (occurrence: US)
  Receive Date: 20200715
  Receipt Date: 20200715
  Transmission Date: 20201103
  Serious: No
  Sender: FDA-Public Use
  Company Number: None

PATIENT

DRUGS (1)
  1. HYDROMORPHONE [Suspect]
     Active Substance: HYDROMORPHONE

REACTIONS (12)
  - Encephalopathy [None]
  - Device use issue [None]
  - Acute kidney injury [None]
  - Hallucination [None]
  - Unresponsive to stimuli [None]
  - Confusional state [None]
  - Hypercapnia [None]
  - Metabolic acidosis [None]
  - Abdominal pain [None]
  - Device infusion issue [None]
  - Apnoea [None]
  - Acute respiratory failure [None]

NARRATIVE: CASE EVENT DATE: 2020
